FAERS Safety Report 4355083-4 (Version None)
Quarter: 2004Q2

REPORT INFORMATION
  Report Type: 
  Country: None (occurrence: None)
  Receive Date: 20040504
  Receipt Date: 20040422
  Transmission Date: 20050107
  Serious: Yes (Hospitalization, Other)
  Sender: FDA-Public Use
  Company Number: USA-2003-0004936

PATIENT
  Age: 41 Year
  Sex: Male
  Weight: 102 kg

DRUGS (18)
  1. OXYCONTIN [Suspect]
     Indication: PAIN
     Dosage: SEE TEXT
     Dates: start: 20000502
  2. MSIR CAPSULES (MORPHINE SULFATE) [Concomitant]
  3. NEURONTIN [Concomitant]
  4. AMBIEN [Concomitant]
  5. LORCET-HD [Concomitant]
  6. NORVASC [Concomitant]
  7. ANTIVERT [Concomitant]
  8. LOZOL [Concomitant]
  9. MICRO-K (POTASSIUM CHLORIDE) [Concomitant]
  10. GLUCOTROL XL [Concomitant]
  11. PRILOSEC [Concomitant]
  12. PANNAZ (CHLORPHENAMINE, HYOSCINE) [Concomitant]
  13. KEFLEX [Concomitant]
  14. PHENERGAN [Concomitant]
  15. HUMULIN R [Concomitant]
  16. TEQUIN [Concomitant]
  17. PRILOSEC [Concomitant]
  18. MELOXICAM (MELOXICAM) [Concomitant]

REACTIONS (45)
  - ABDOMINAL PAIN [None]
  - ANXIETY [None]
  - APHAGIA [None]
  - ASTHENIA [None]
  - CARDIAC FAILURE CONGESTIVE [None]
  - CHEST PAIN [None]
  - CHILLS [None]
  - CHOLECYSTITIS ACUTE [None]
  - CHRONIC OBSTRUCTIVE AIRWAYS DISEASE [None]
  - COLONIC POLYP [None]
  - CONDITION AGGRAVATED [None]
  - CONSTIPATION [None]
  - COUGH [None]
  - DEHYDRATION [None]
  - DEPRESSION [None]
  - DISCOMFORT [None]
  - DISORIENTATION [None]
  - DIZZINESS [None]
  - DRUG DEPENDENCE [None]
  - DRUG WITHDRAWAL SYNDROME [None]
  - DUODENITIS [None]
  - DYSPNOEA [None]
  - EMOTIONAL DISTRESS [None]
  - GASTROENTERITIS HELICOBACTER [None]
  - HAEMATOCHEZIA [None]
  - HAEMORRHOIDS [None]
  - HOARSENESS [None]
  - HYPERHIDROSIS [None]
  - INADEQUATE ANALGESIA [None]
  - IRRITABILITY [None]
  - LABYRINTHITIS [None]
  - LIPASE INCREASED [None]
  - MALAISE [None]
  - NAUSEA [None]
  - PAIN [None]
  - PAIN EXACERBATED [None]
  - PARANOIA [None]
  - PYREXIA [None]
  - RASH [None]
  - TREMOR [None]
  - URINARY HESITATION [None]
  - VOCAL CORD POLYP [None]
  - VOMITING [None]
  - WEIGHT DECREASED [None]
  - WHITE BLOOD CELL COUNT INCREASED [None]
